FAERS Safety Report 13181923 (Version 1)
Quarter: 2017Q1

REPORT INFORMATION
  Report Type: Spontaneous
  Country: US (occurrence: US)
  Receive Date: 20170202
  Receipt Date: 20170202
  Transmission Date: 20170428
  Serious: No
  Sender: FDA-Public Use
  Company Number: US-IMPAX LABORATORIES, INC-2016-IPXL-02284

PATIENT
  Age: 77 Year
  Sex: Female
  Weight: 60 kg

DRUGS (2)
  1. RYTARY [Suspect]
     Active Substance: CARBIDOPA\LEVODOPA
     Dosage: 36.25/145 MG EACH AT 7 AM, 11 AM, 3 PM AND 2 CAPSULES AT 7 PM+ 1 CAPSULE OF 23.75/95 MG
     Route: 048
     Dates: start: 2016
  2. RYTARY [Suspect]
     Active Substance: CARBIDOPA\LEVODOPA
     Indication: PARKINSON^S DISEASE
     Dosage: 36.25/145 MG EACH AT 7 AM, 11 AM, 3 PM (CAPSULE) AND 7 PM AND ONE CAPSULE OF 48.75/195 AT 11 PM
     Route: 048
     Dates: start: 2015

REACTIONS (2)
  - Muscle spasms [Not Recovered/Not Resolved]
  - Dyskinesia [Unknown]

NARRATIVE: CASE EVENT DATE: 2016
